FAERS Safety Report 8262896-5 (Version None)
Quarter: 2012Q2

REPORT INFORMATION
  Report Type: 
  Country: None (occurrence: None)
  Receive Date: 20120405
  Receipt Date: 20120326
  Transmission Date: 20120825
  Serious: Yes (Hospitalization)
  Sender: FDA-Public Use
  Company Number: JP-GLAXOSMITHKLINE-B0629708A

PATIENT
  Sex: Female
  Weight: 48 kg

DRUGS (5)
  1. TYKERB [Suspect]
     Indication: INFLAMMATORY CARCINOMA OF THE BREAST
     Dosage: 1250MG PER DAY
     Route: 048
     Dates: start: 20090623, end: 20100302
  2. XELODA [Suspect]
     Indication: INFLAMMATORY CARCINOMA OF THE BREAST
     Dosage: 3000MG PER DAY
     Route: 048
     Dates: start: 20090624, end: 20090728
  3. XELODA [Suspect]
     Dosage: 1800MG PER DAY
     Route: 048
     Dates: start: 20090819, end: 20100302
  4. PYDOXAL [Concomitant]
     Indication: HYPOAESTHESIA
     Route: 048
  5. VITAMIN A [Concomitant]
     Indication: SKIN DISORDER
     Route: 061

REACTIONS (2)
  - DIARRHOEA [None]
  - INFECTION [None]
